FAERS Safety Report 15947932 (Version 1)
Quarter: 2019Q1

REPORT INFORMATION
  Report Type: Spontaneous
  Country: US (occurrence: US)
  Receive Date: 20190211
  Receipt Date: 20190211
  Transmission Date: 20190417
  Serious: Yes (Other)
  Sender: FDA-Public Use
  Company Number: US-IMPAX LABORATORIES, LLC-2019-IPXL-00461

PATIENT
  Age: 82 Year
  Sex: Male
  Weight: 66 kg

DRUGS (1)
  1. RYTARY [Suspect]
     Active Substance: CARBIDOPA\LEVODOPA
     Indication: PARKINSON^S DISEASE
     Dosage: 1 DOSAGE FORM, TID
     Route: 048
     Dates: start: 201607

REACTIONS (2)
  - Pancreatitis [Recovered/Resolved]
  - Dementia [Unknown]

NARRATIVE: CASE EVENT DATE: 201811
